FAERS Safety Report 18266482 (Version 1)
Quarter: 2020Q3

REPORT INFORMATION
  Report Type: Spontaneous
  Country: US (occurrence: US)
  Receive Date: 20200914
  Receipt Date: 20200914
  Transmission Date: 20201103
  Serious: Yes (Other)
  Sender: FDA-Public Use
  Company Number: None

PATIENT
  Age: 9 Year
  Sex: Female
  Weight: 43.09 kg

DRUGS (1)
  1. TESSALON [Suspect]
     Active Substance: BENZONATATE
     Indication: COUGH
     Route: 048

REACTIONS (8)
  - Dyspnoea [None]
  - Presyncope [None]
  - Product use issue [None]
  - Blood pressure diastolic decreased [None]
  - Emotional distress [None]
  - Oxygen saturation decreased [None]
  - Heart rate decreased [None]
  - Speech disorder [None]

NARRATIVE: CASE EVENT DATE: 20200211
